FAERS Safety Report 24196307 (Version 1)
Quarter: 2024Q3

REPORT INFORMATION
  Report Type: Spontaneous
  Country: CA (occurrence: CA)
  Receive Date: 20240809
  Receipt Date: 20240809
  Transmission Date: 20241017
  Serious: Yes (Hospitalization, Other)
  Sender: TEVA
  Company Number: CA-TEVA-VS-3227859

PATIENT
  Sex: Female

DRUGS (5)
  1. CLINDAMYCIN PHOSPHATE [Suspect]
     Active Substance: CLINDAMYCIN PHOSPHATE
     Indication: Cough
     Route: 065
  2. LACTOBACILLUS ACIDOPHILUS/LACTOBACILLUS RHAMNOSUS/STREPTOCOCCUS THE... [Concomitant]
     Indication: Product used for unknown indication
     Route: 065
  3. PANTOPRAZOLE SODIUM [Suspect]
     Active Substance: PANTOPRAZOLE SODIUM
     Indication: Oropharyngeal pain
     Dosage: DOSE FORM : TABLET (ENTERIC-COATED)
     Route: 065
  4. PANTOPRAZOLE SODIUM [Suspect]
     Active Substance: PANTOPRAZOLE SODIUM
     Indication: Oropharyngeal pain
     Route: 065
  5. PANTOPRAZOLE SODIUM [Suspect]
     Active Substance: PANTOPRAZOLE SODIUM
     Indication: Oropharyngeal pain
     Route: 065

REACTIONS (5)
  - Clostridium difficile infection [Unknown]
  - Weight decreased [Unknown]
  - Malaise [Unknown]
  - Product use in unapproved indication [Unknown]
  - Vitamin B12 decreased [Unknown]
